FAERS Safety Report 24317020 (Version 1)
Quarter: 2024Q3

REPORT INFORMATION
  Report Type: Spontaneous
  Country: US (occurrence: US)
  Receive Date: 20240913
  Receipt Date: 20240913
  Transmission Date: 20241017
  Serious: No
  Sender: SANOFI AVENTIS
  Company Number: US-SANOFI-02209152

PATIENT
  Age: 70 Year
  Sex: Female

DRUGS (2)
  1. TOUJEO MAX [Suspect]
     Active Substance: INSULIN GLARGINE
     Indication: Diabetes mellitus
     Dosage: 2 UNITS AM/ 8 UNITS PM, BID
  2. SODIUM [Concomitant]
     Active Substance: SODIUM

REACTIONS (1)
  - Off label use [Unknown]
